FAERS Safety Report 6861122-9 (Version None)
Quarter: 2010Q3

REPORT INFORMATION
  Report Type: 
  Country: None (occurrence: None)
  Receive Date: 20100720
  Receipt Date: 20100708
  Transmission Date: 20110219
  Serious: Yes (Other)
  Sender: FDA-Public Use
  Company Number: US-PFIZER INC-2007050915

PATIENT
  Sex: Female
  Weight: 93.4 kg

DRUGS (7)
  1. CHANTIX [Suspect]
     Indication: SMOKING CESSATION THERAPY
     Dosage: 0.5 MG, 1X/DAY
     Route: 048
     Dates: start: 20100501, end: 20100609
  2. CHANTIX [Suspect]
     Dosage: UNK
     Dates: start: 20070401
  3. NORVASC [Suspect]
     Indication: HYPERTENSION
     Dates: start: 20050101
  4. ZOCOR [Concomitant]
     Route: 048
  5. ACETYLSALICYLIC ACID [Concomitant]
     Route: 048
  6. AMLODIPINE [Concomitant]
     Dosage: UNK
  7. METOPROLOL [Concomitant]
     Dosage: UNK

REACTIONS (3)
  - BLOOD PRESSURE INCREASED [None]
  - HALLUCINATION [None]
  - NERVOUSNESS [None]
